FAERS Safety Report 4894702-0 (Version None)
Quarter: 2006Q1

REPORT INFORMATION
  Report Type: 
  Country: None (occurrence: None)
  Receive Date: 20060127
  Receipt Date: 20060127
  Transmission Date: 20060701
  Serious: Yes (Disabling, Other)
  Sender: FDA-Public Use
  Company Number: None

PATIENT
  Age: 45 Year
  Sex: Female
  Weight: 62.5964 kg

DRUGS (11)
  1. TAXOTERE [Suspect]
     Indication: BREAST CANCER
     Dosage: 100 MG/M2 IV Q 2 WEEKS
     Route: 042
     Dates: start: 20051102
  2. TAXOTERE [Suspect]
     Indication: BREAST CANCER
     Dosage: 100 MG/M2 IV Q 2 WEEKS
     Route: 042
     Dates: start: 20051116
  3. TAXOTERE [Suspect]
     Indication: BREAST CANCER
     Dosage: 100 MG/M2 IV Q 2 WEEKS
     Route: 042
     Dates: start: 20051130
  4. TAXOTERE [Suspect]
     Indication: BREAST CANCER
     Dosage: 100 MG/M2 IV Q 2 WEEKS
     Route: 042
     Dates: start: 20051214
  5. MAGNESIUM OXIDE [Concomitant]
  6. K-DUR 10 [Concomitant]
  7. ULTRA MINERALS [Concomitant]
  8. LEVAQUIN [Concomitant]
  9. VIT C [Concomitant]
  10. M.V.I. [Concomitant]
  11. NEULASTA [Concomitant]

REACTIONS (3)
  - ASTHENIA [None]
  - MYALGIA [None]
  - NEUROPATHY PERIPHERAL [None]
